FAERS Safety Report 18441243 (Version 1)
Quarter: 2020Q4

REPORT INFORMATION
  Report Type: Spontaneous
  Country: FI (occurrence: FI)
  Receive Date: 20201029
  Receipt Date: 20201029
  Transmission Date: 20210114
  Serious: Yes (Hospitalization)
  Sender: FDA-Public Use
  Company Number: FI-JNJFOC-20201032484

PATIENT
  Age: 91 Year
  Sex: Male

DRUGS (11)
  1. SPIRONOLACTONE. [Concomitant]
     Active Substance: SPIRONOLACTONE
     Dosage: 12.5 MG, QD
     Route: 048
  2. MEMANTINE RATIOPHARM [Concomitant]
     Active Substance: MEMANTINE
     Dosage: 20 MG, QD
     Route: 048
  3. METOHEXAL [Concomitant]
     Active Substance: METOPROLOL
     Dosage: 23.7 MG, QD
     Route: 048
  4. FURESIS [Concomitant]
     Active Substance: FUROSEMIDE
     Dosage: 250 MG, QD
     Route: 048
  5. PANACOD [Concomitant]
     Active Substance: ACETAMINOPHEN\CODEINE PHOSPHATE
     Dosage: UNK, PRN
     Route: 048
  6. XARELTO [Suspect]
     Active Substance: RIVAROXABAN
     Indication: ATRIAL FIBRILLATION
     Dosage: 20 MG, QD
     Route: 048
     Dates: start: 20180706
  7. DONEPEZIL ORION [Concomitant]
     Dosage: 5 MG, QD
     Route: 048
  8. KALEORID [Concomitant]
     Active Substance: POTASSIUM CHLORIDE
     Dosage: 1 G, QD
     Route: 048
  9. PAMOL [Concomitant]
     Active Substance: ACETAMINOPHEN
     Dosage: 3 G, QD
     Route: 048
  10. MELATONIN VITABALANS [Concomitant]
     Dosage: 3 MG, QD
     Route: 048
  11. DUODART [Concomitant]
     Active Substance: DUTASTERIDE\TAMSULOSIN
     Dosage: 1 DF, QD
     Route: 048

REACTIONS (2)
  - Cerebral infarction [Unknown]
  - Aphasia [Unknown]

NARRATIVE: CASE EVENT DATE: 20201003
